FAERS Safety Report 12235893 (Version 3)
Quarter: 2016Q2

REPORT INFORMATION
  Report Type: Spontaneous
  Country: JP (occurrence: JP)
  Receive Date: 20160404
  Receipt Date: 20160414
  Transmission Date: 20160815
  Serious: Yes (Death, Hospitalization, Other)
  Sender: FDA-Public Use
  Company Number: JP-MDT-ADR-2016-00430

PATIENT
  Age: 56 Year
  Sex: Male
  Weight: 58 kg

DRUGS (2)
  1. GABALON [Suspect]
     Active Substance: BACLOFEN
     Route: 037
     Dates: start: 20100517
  2. GABALON 0.2% [Suspect]
     Active Substance: BACLOFEN
     Dosage: 593.9 MCG/DAY
     Route: 037
     Dates: start: 20100517, end: 20160229

REACTIONS (7)
  - Cough [Fatal]
  - Pyrexia [Fatal]
  - Productive cough [Fatal]
  - C-reactive protein increased [Fatal]
  - Haematocrit decreased [Fatal]
  - Pneumonia [Fatal]
  - Haemoglobin decreased [Fatal]
